FAERS Safety Report 4765520-9 (Version None)
Quarter: 2005Q3

REPORT INFORMATION
  Report Type: 
  Country: None (occurrence: None)
  Receive Date: 20050906
  Receipt Date: 20050822
  Transmission Date: 20060218
  Serious: Yes (Hospitalization, Other)
  Sender: FDA-Public Use
  Company Number: 2005118019

PATIENT
  Sex: Female

DRUGS (2)
  1. TOLTERODINE TARTRATE [Suspect]
     Indication: ILL-DEFINED DISORDER
  2. NORFLOXACIN [Suspect]
     Indication: PROTEUS INFECTION

REACTIONS (17)
  - ANAEMIA [None]
  - ANGIOPATHY [None]
  - C-REACTIVE PROTEIN INCREASED [None]
  - CEREBROVASCULAR DISORDER [None]
  - CHRONIC OBSTRUCTIVE PULMONARY DISEASE [None]
  - CONFUSIONAL STATE [None]
  - DIARRHOEA [None]
  - DYSPHASIA [None]
  - FALL [None]
  - HAEMOGLOBIN DECREASED [None]
  - HYPONATRAEMIA [None]
  - HYPOVOLAEMIA [None]
  - MICROANGIOPATHY [None]
  - PROTEUS INFECTION [None]
  - URGE INCONTINENCE [None]
  - URINARY INCONTINENCE [None]
  - WHITE BLOOD CELL COUNT DECREASED [None]
